FAERS Safety Report 14518448 (Version 6)
Quarter: 2018Q3

REPORT INFORMATION
  Report Type: Spontaneous
  Country: CA (occurrence: CA)
  Receive Date: 20180212
  Receipt Date: 20180821
  Transmission Date: 20181010
  Serious: Yes (Other)
  Sender: FDA-Public Use
  Company Number: CA-CELLTRION INC.-2017CA012334

PATIENT

DRUGS (7)
  1. INFLECTRA [Suspect]
     Active Substance: INFLIXIMAB-DYYB
     Dosage: 955 MG CYCLIC (EVERY 4 WEEKS)
     Route: 042
     Dates: start: 20180419, end: 20180419
  2. INFLECTRA [Suspect]
     Active Substance: INFLIXIMAB-DYYB
     Dosage: 960 MG CYCLIC (EVERY 4 WEEKS)
     Route: 042
     Dates: start: 20180809
  3. INFLECTRA [Suspect]
     Active Substance: INFLIXIMAB-DYYB
     Dosage: 970 MG CYCLIC, 10 MG/KG EVERY 4 WEEKS
     Route: 042
     Dates: start: 20180322
  4. INFLECTRA [Suspect]
     Active Substance: INFLIXIMAB-DYYB
     Dosage: 957 MG CYCLIC, 10 MG/KG EVERY 4 WEEKS
     Route: 042
     Dates: start: 20180126
  5. INFLECTRA [Suspect]
     Active Substance: INFLIXIMAB-DYYB
     Dosage: 950 MG
     Route: 042
     Dates: start: 20180614
  6. INFLECTRA [Suspect]
     Active Substance: INFLIXIMAB-DYYB
     Dosage: 969 MG CYCLIC (EVERY 4 WEEKS)
     Route: 042
     Dates: start: 20180712
  7. INFLECTRA [Suspect]
     Active Substance: INFLIXIMAB-DYYB
     Indication: COLITIS ULCERATIVE
     Dosage: 969 MG, CYCLIC THEN EVERY 4WEEKS
     Route: 042
     Dates: start: 20170424

REACTIONS (10)
  - Constipation [Unknown]
  - Abdominal pain [Recovered/Resolved]
  - Haematochezia [Recovered/Resolved]
  - Product use issue [Unknown]
  - Malaise [Unknown]
  - Incorrect drug administration duration [Unknown]
  - Diarrhoea [Recovered/Resolved]
  - Drug prescribing error [Unknown]
  - Incorrect dose administered [Unknown]
  - Blood pressure fluctuation [Recovered/Resolved]

NARRATIVE: CASE EVENT DATE: 201709
